FAERS Safety Report 17180754 (Version 1)
Quarter: 2019Q4

REPORT INFORMATION
  Report Type: Report from Study
  Country: HK (occurrence: HK)
  Receive Date: 20191219
  Receipt Date: 20191219
  Transmission Date: 20200122
  Serious: Yes (Hospitalization, Other)
  Sender: FDA-Public Use
  Company Number: HK-TOLMAR, INC.-19HK001109

PATIENT
  Age: 79 Year
  Sex: Male

DRUGS (53)
  1. PARACETAMOL [Concomitant]
     Active Substance: ACETAMINOPHEN
     Indication: PRODUCT USED FOR UNKNOWN INDICATION
     Dosage: UNK
     Dates: start: 20180130, end: 20181222
  2. CHLORPHENIRAMINE MALEATE. [Concomitant]
     Active Substance: CHLORPHENIRAMINE MALEATE
     Indication: PRODUCT USED FOR UNKNOWN INDICATION
     Dosage: UNK
     Dates: start: 20180130, end: 20190520
  3. LISINOPRIL. [Concomitant]
     Active Substance: LISINOPRIL
     Indication: HYPERTENSION
     Dosage: 2.5 MG
     Route: 048
     Dates: start: 20180918, end: 20181218
  4. LISINOPRIL. [Concomitant]
     Active Substance: LISINOPRIL
     Dosage: 5 MG
     Route: 048
     Dates: start: 20181219
  5. METHYL SALICYLATE OINTMENT COMPOUND [Concomitant]
     Indication: NEURALGIA
     Dosage: 20 GRAM
     Route: 061
     Dates: start: 20180306, end: 20180319
  6. BISOLVON [Concomitant]
     Active Substance: BROMHEXINE HYDROCHLORIDE
     Indication: COUGH
     Dosage: 8 MG
     Route: 048
     Dates: start: 20180706, end: 20180710
  7. BONJELA [CETALKONIUM CHLORIDE;CHOLINE SALICYLATE] [Concomitant]
     Dosage: 15 GRAM
     Route: 048
     Dates: start: 20190221
  8. DEQUALINIUM [Concomitant]
     Active Substance: DEQUALINIUM
     Indication: INFLUENZA
     Dosage: 250 MG
     Route: 060
     Dates: start: 20181121, end: 20181124
  9. DEQUALINIUM [Concomitant]
     Active Substance: DEQUALINIUM
     Dosage: 250 MG
     Route: 060
     Dates: start: 20190211, end: 20190214
  10. AMMONIA + IPECACUANHA MIXTURE [Concomitant]
     Indication: COUGH
     Dosage: 10 MILLILITER
     Route: 048
     Dates: start: 20180808, end: 20180811
  11. AMMONIA + IPECACUANHA MIXTURE [Concomitant]
     Dosage: 10 MILLILITER
     Route: 048
     Dates: start: 20190306, end: 20190309
  12. AMMONIA + IPECACUANHA MIXTURE [Concomitant]
     Dosage: 10 MILLILITER
     Route: 048
     Dates: start: 20190418, end: 20190421
  13. DIPHENHYDRAMINE COMPOUND LINCTUS [AMMONIUM CHLORIDE;DIPHENHYDRAMINE HY [Concomitant]
     Indication: COUGH
     Dosage: 10 MILLILITER
     Route: 048
     Dates: start: 20181116, end: 20181119
  14. BONJELA [CETALKONIUM CHLORIDE;CHOLINE SALICYLATE] [Concomitant]
     Dosage: 15 GRAM
     Route: 048
     Dates: start: 20181016, end: 20181022
  15. LYSOZYME CHLORIDE [Concomitant]
     Active Substance: LYSOZYME HYDROCHLORIDE
     Indication: INFLUENZA
     Dosage: 30 MG
     Route: 048
     Dates: start: 20180918, end: 20180921
  16. AMMONIA + IPECACUANHA MIXTURE [Concomitant]
     Dosage: 10 MILLILITER
     Route: 048
     Dates: start: 20181219, end: 20181222
  17. AMMONIA + IPECACUANHA MIXTURE [Concomitant]
     Dosage: 10 MILLILITER
     Route: 048
     Dates: start: 20190509, end: 20190512
  18. GABAPENTIN. [Concomitant]
     Active Substance: GABAPENTIN
     Indication: NEURALGIA
     Dosage: 300 MG
     Route: 048
     Dates: start: 20180222, end: 20180305
  19. LYSOZYME CHLORIDE [Concomitant]
     Active Substance: LYSOZYME HYDROCHLORIDE
     Dosage: 30 MG
     Route: 048
     Dates: start: 20180926, end: 20180929
  20. LYSOZYME CHLORIDE [Concomitant]
     Active Substance: LYSOZYME HYDROCHLORIDE
     Dosage: 30 MG
     Route: 048
     Dates: start: 20190514, end: 20190520
  21. CETIRIZINE HCL [Concomitant]
     Active Substance: CETIRIZINE HYDROCHLORIDE
     Indication: INFLUENZA
     Dosage: 10 MG
     Route: 048
     Dates: start: 20181116, end: 20181119
  22. LYSOZYME CHLORIDE [Concomitant]
     Active Substance: LYSOZYME HYDROCHLORIDE
     Dosage: 30 MG
     Route: 048
     Dates: start: 20181016, end: 20181019
  23. LYSOZYME CHLORIDE [Concomitant]
     Active Substance: LYSOZYME HYDROCHLORIDE
     Dosage: 30 MG
     Route: 048
     Dates: start: 20180211, end: 20190214
  24. AMMONIA + IPECACUANHA MIXTURE [Concomitant]
     Dosage: 10 MILLILITER
     Route: 048
     Dates: start: 20190514, end: 20190520
  25. LORATADINE. [Concomitant]
     Active Substance: LORATADINE
     Dosage: 10 MG
     Route: 048
     Dates: start: 20190306, end: 20190310
  26. AMLODIPINE [Concomitant]
     Active Substance: AMLODIPINE BESYLATE
     Indication: HYPERTENSION
     Dosage: 5 MG
     Route: 048
     Dates: start: 20181219
  27. METOCLOPRAMIDE HCL [Concomitant]
     Active Substance: METOCLOPRAMIDE HYDROCHLORIDE
     Indication: ABDOMINAL PAIN UPPER
     Dosage: 10 MG
     Route: 048
     Dates: start: 20190211, end: 20190214
  28. ADALAT [Concomitant]
     Active Substance: NIFEDIPINE
     Indication: HYPERTENSION
     Dosage: 20 MG
     Route: 048
     Dates: start: 20180222, end: 20180910
  29. BONJELA [CETALKONIUM CHLORIDE;CHOLINE SALICYLATE] [Concomitant]
     Dosage: 15 GRAM
     Route: 048
     Dates: start: 20180731, end: 20180806
  30. DEQUALINIUM [Concomitant]
     Active Substance: DEQUALINIUM
     Dosage: 250 MG
     Route: 060
     Dates: start: 20180808, end: 20180811
  31. AMMONIA + IPECACUANHA MIXTURE [Concomitant]
     Dosage: 10 MILLILITER
     Route: 048
     Dates: start: 20180918, end: 20180921
  32. AMMONIA + IPECACUANHA MIXTURE [Concomitant]
     Dosage: 10 MILLILITER
     Route: 048
     Dates: start: 20190221, end: 20190224
  33. NORVASC [Concomitant]
     Active Substance: AMLODIPINE BESYLATE
     Indication: HYPERTENSION
     Dosage: 5 MG
     Route: 048
     Dates: start: 20180918, end: 20181218
  34. COCILLANA COMP [Concomitant]
     Indication: COUGH
     Dosage: 10 MILLILITER
     Route: 048
     Dates: start: 20180926, end: 20180929
  35. COCILLANA COMP [Concomitant]
     Dosage: 10 MILLILITER
     Route: 048
     Dates: start: 20181121, end: 20181124
  36. LORATADINE. [Concomitant]
     Active Substance: LORATADINE
     Dosage: 10 MG
     Route: 048
     Dates: start: 20181211, end: 20181214
  37. BROMHEXINE [Concomitant]
     Active Substance: BROMHEXINE
     Indication: COUGH
     Dosage: 8 MG
     Route: 048
     Dates: start: 20190211, end: 20190214
  38. ELIGARD [Suspect]
     Active Substance: LEUPROLIDE ACETATE
     Indication: HORMONE-DEPENDENT PROSTATE CANCER
     Dosage: 22.5 MG, Q3MONTHS
     Route: 058
     Dates: start: 20180112, end: 20190408
  39. LYSOZYME CHLORIDE [Concomitant]
     Active Substance: LYSOZYME HYDROCHLORIDE
     Dosage: 30 MG
     Route: 048
     Dates: start: 20181121, end: 20181124
  40. LYSOZYME CHLORIDE [Concomitant]
     Active Substance: LYSOZYME HYDROCHLORIDE
     Dosage: 30 MG
     Route: 048
     Dates: start: 20190418, end: 20190421
  41. DEQUALINIUM [Concomitant]
     Active Substance: DEQUALINIUM
     Indication: OROPHARYNGEAL PAIN
     Dosage: 250 MG
     Route: 048
     Dates: start: 20190306, end: 20190309
  42. COCILLANA COMP [Concomitant]
     Indication: PRODUCT USED FOR UNKNOWN INDICATION
     Dosage: UNK
     Dates: start: 20180130, end: 20181214
  43. PIRITION [Concomitant]
     Indication: INFLUENZA
     Dosage: 4 MILLIGRAM
     Route: 048
     Dates: start: 20180706, end: 20180710
  44. LYSOZYME CHLORIDE [Concomitant]
     Active Substance: LYSOZYME HYDROCHLORIDE
     Dosage: 30 MG
     Route: 048
     Dates: start: 20181116, end: 20181119
  45. LYSOZYME CHLORIDE [Concomitant]
     Active Substance: LYSOZYME HYDROCHLORIDE
     Dosage: 30 MG
     Route: 048
     Dates: start: 20181211, end: 20181222
  46. LYSOZYME CHLORIDE [Concomitant]
     Active Substance: LYSOZYME HYDROCHLORIDE
     Dosage: 30 MG
     Route: 048
     Dates: start: 20190221, end: 20190224
  47. LYSOZYME CHLORIDE [Concomitant]
     Active Substance: LYSOZYME HYDROCHLORIDE
     Dosage: 4 MG
     Route: 048
     Dates: start: 20190509, end: 20190512
  48. AMMONIA + IPECACUANHA MIXTURE [Concomitant]
     Dosage: 10 MILLILITER
     Route: 048
     Dates: start: 20190409, end: 20190412
  49. ZOPICLONE [Concomitant]
     Active Substance: ZOPICLONE
     Indication: INSOMNIA
     Dosage: 3.7 MG
     Route: 048
     Dates: start: 20190306, end: 20190402
  50. SENNA [SENNA ALEXANDRINA] [Concomitant]
     Active Substance: SENNA LEAF
     Indication: PRODUCT USED FOR UNKNOWN INDICATION
     Dosage: UNK
     Dates: start: 20180130, end: 20180305
  51. LISINOPRIL. [Concomitant]
     Active Substance: LISINOPRIL
     Dosage: 2.5 MG
     Route: 048
     Dates: start: 20180222, end: 20180910
  52. BONJELA [CETALKONIUM CHLORIDE;CHOLINE SALICYLATE] [Concomitant]
     Indication: INFLUENZA
     Dosage: 15 GRAM
     Route: 048
     Dates: start: 20180706, end: 20180712
  53. LORATADINE. [Concomitant]
     Active Substance: LORATADINE
     Indication: INFLUENZA
     Dosage: 10 MG
     Route: 048
     Dates: start: 20181121, end: 20181124

REACTIONS (2)
  - Malignant neoplasm progression [Unknown]
  - Back pain [Recovered/Resolved]

NARRATIVE: CASE EVENT DATE: 20180209
